FAERS Safety Report 9896338 (Version 1)
Quarter: 2014Q1

REPORT INFORMATION
  Report Type: Spontaneous
  Country: US (occurrence: US)
  Receive Date: 20140213
  Receipt Date: 20140213
  Transmission Date: 20141002
  Serious: Yes (Other)
  Sender: FDA-Public Use
  Company Number: PHEH2014US002638

PATIENT
  Sex: Female

DRUGS (11)
  1. MYFORTIC [Suspect]
     Dosage: UNK UKN, UNK
  2. CICLOSPORIN [Suspect]
     Dosage: UNK UKN, UNK
  3. FENOFIBRATE [Suspect]
     Dosage: UNK UKN, UNK
  4. MYCOPHENOLATE MOFETIL [Suspect]
     Dosage: UNK UKN, UNK
  5. ENALAPRIL [Suspect]
     Dosage: 10 MG, UNK
  6. NEORAL [Suspect]
     Dosage: UNK UKN, UNK
  7. AMLODIPINE [Suspect]
     Dosage: 5 MG, UNK
  8. METOPROLOL [Suspect]
     Dosage: 50 MG, UNK
  9. METFORMIN [Concomitant]
     Dosage: 500 MG, UNK
  10. GLIPIZIDE [Concomitant]
     Dosage: UNK UKN, UNK
  11. PRAVASTATIN [Concomitant]
     Dosage: UNK UKN, UNK

REACTIONS (2)
  - Diabetes mellitus [Unknown]
  - Hypertension [Unknown]
